FAERS Safety Report 8139554-0 (Version None)
Quarter: 2012Q1

REPORT INFORMATION
  Report Type: 
  Country: None (occurrence: None)
  Receive Date: 20120215
  Receipt Date: 20120210
  Transmission Date: 20120608
  Serious: Yes (Hospitalization, Other)
  Sender: FDA-Public Use
  Company Number: US-GILEAD-2011-0043999

PATIENT
  Sex: Female

DRUGS (13)
  1. DARUNAVIR [Concomitant]
     Indication: HIV INFECTION
     Dosage: 800 MG, QD
     Route: 048
     Dates: start: 20100826, end: 20110914
  2. MS CONTIN [Concomitant]
     Indication: PAIN
  3. EMTRICITABINE/TENOFOVIR DISOPROXIL FUMARATE [Suspect]
     Indication: HIV INFECTION
     Dosage: 1 DF, QD
     Route: 048
     Dates: start: 20100826, end: 20110914
  4. RALTEGRAVIR [Concomitant]
     Indication: HIV INFECTION
  5. RITONAVIR [Concomitant]
     Indication: HIV INFECTION
     Dosage: 100 MG, QD
     Route: 048
     Dates: start: 20100826, end: 20110914
  6. ALPRAZOLAM [Concomitant]
     Indication: ANXIETY
  7. SINGULAIR [Concomitant]
     Indication: ASTHMA
  8. SOMA [Concomitant]
     Indication: PAIN
  9. NEXIUM [Concomitant]
     Indication: GASTROOESOPHAGEAL REFLUX DISEASE
  10. PROVENTIL [Concomitant]
     Indication: ASTHMA
  11. PAMELOR [Concomitant]
     Indication: DEPRESSION
  12. ZOFRAN [Concomitant]
     Indication: NAUSEA
  13. ABILIFY [Concomitant]
     Indication: DEPRESSION

REACTIONS (2)
  - RENAL FAILURE ACUTE [None]
  - RHABDOMYOLYSIS [None]
